FAERS Safety Report 5778122-2 (Version None)
Quarter: 2008Q2

REPORT INFORMATION
  Report Type: 
  Country: None (occurrence: None)
  Receive Date: 20080618
  Receipt Date: 20080618
  Transmission Date: 20081010
  Serious: Yes (Hospitalization)
  Sender: FDA-Public Use
  Company Number: None

PATIENT
  Age: 18 Year
  Sex: Female

DRUGS (4)
  1. CPD SOLUTION IN GLASS BOTTLES INJ [Suspect]
     Indication: NASOPHARYNGEAL CANCER
     Dosage: 100 MG/M**2 CYC IV
     Route: 042
     Dates: start: 20080225, end: 20080319
  2. RADIOTHERAPY [Suspect]
     Indication: NASOPHARYNGEAL CANCER
     Dates: start: 20080225
  3. TRAMADOL HCL [Concomitant]
  4. DURAGESIC-100 [Concomitant]

REACTIONS (11)
  - ANOREXIA [None]
  - ELECTROLYTE IMBALANCE [None]
  - HAEMOGLOBIN DECREASED [None]
  - NEUTROPENIA [None]
  - ORAL FUNGAL INFECTION [None]
  - PLATELET COUNT DECREASED [None]
  - PNEUMONIA [None]
  - RADIATION INJURY [None]
  - SKIN MACERATION [None]
  - WEIGHT DECREASED [None]
  - WOUND [None]
